FAERS Safety Report 9656766 (Version 1)
Quarter: 2013Q4

REPORT INFORMATION
  Report Type: Spontaneous
  Country: IL (occurrence: None)
  Receive Date: 20131028
  Receipt Date: 20131028
  Transmission Date: 20140711
  Serious: Yes (Hospitalization)
  Sender: FDA-Public Use
  Company Number: IPC201310-000406

PATIENT
  Sex: Male

DRUGS (7)
  1. METFORMIN HYDROCHLORIDE [Suspect]
     Indication: TYPE 2 DIABETES MELLITUS
  2. ASPIRIN (ASPIRIN) (ASPIRIN) [Concomitant]
  3. PRAVASTATIN (PRAVASTATIN) (PRAVASTATIN) [Concomitant]
  4. AMLODIPINE [Concomitant]
  5. ATENOLOL (ATENOLOL) (ATENOLOL) [Concomitant]
  6. CANDESARTAN [Concomitant]
  7. HYDROCHLOROTHIAZIDE (HYDROCHLOROTHIAZIDE) (HYDROCHLOROTHIAZIDE) [Concomitant]

REACTIONS (3)
  - Hepatotoxicity [None]
  - Hepatocellular injury [None]
  - Cholestatic liver injury [None]
